FAERS Safety Report 7144044-8 (Version None)
Quarter: 2010Q4

REPORT INFORMATION
  Report Type: 
  Country: None (occurrence: None)
  Receive Date: 20101208
  Receipt Date: 20101126
  Transmission Date: 20110411
  Serious: No
  Sender: FDA-Public Use
  Company Number: US-BIOGENIDEC-2010BI041994

PATIENT
  Age: 38 Year
  Sex: Male

DRUGS (2)
  1. AVONEX [Suspect]
     Indication: MULTIPLE SCLEROSIS
     Route: 030
     Dates: start: 20101104, end: 20101101
  2. AVONEX [Suspect]
     Route: 030
     Dates: start: 20101101

REACTIONS (2)
  - GAIT DISTURBANCE [None]
  - VISION BLURRED [None]
